FAERS Safety Report 7415311-5 (Version None)
Quarter: 2011Q2

REPORT INFORMATION
  Report Type: 
  Country: None (occurrence: None)
  Receive Date: 20110414
  Receipt Date: 20100322
  Transmission Date: 20111010
  Serious: No
  Sender: FDA-Public Use
  Company Number: US-MYLANLABS-2010S1003644

PATIENT
  Age: 50 Year
  Sex: Female

DRUGS (3)
  1. VERAPAMIL HCL [Suspect]
     Indication: HYPERTENSION
     Route: 048
     Dates: start: 20100211, end: 20100216
  2. CEFADROXIL [Concomitant]
     Route: 048
  3. ORTHO-CEPT [Concomitant]
     Dates: start: 19900101

REACTIONS (1)
  - VULVOVAGINAL PRURITUS [None]
